FAERS Safety Report 6333564-1 (Version None)
Quarter: 2009Q3

REPORT INFORMATION
  Report Type: 
  Country: None (occurrence: None)
  Receive Date: 20090829
  Receipt Date: 20071205
  Transmission Date: 20100115
  Serious: Yes (Other)
  Sender: FDA-Public Use
  Company Number: US-ASTRAZENECA-2007UW18572

PATIENT
  Age: 14780 Day
  Sex: Male

DRUGS (9)
  1. SEROQUEL [Suspect]
     Dosage: 50 MG TO 300 MG
     Route: 048
     Dates: start: 20010604
  2. ZYPREXA [Concomitant]
  3. RISPERDAL [Concomitant]
  4. EFFEXOR [Concomitant]
     Dates: start: 20010604
  5. TRAZODONE HCL [Concomitant]
     Dosage: 100 MG TO 250 MG
     Dates: start: 20010604
  6. PREVACID [Concomitant]
     Dates: start: 20010604
  7. LEXAPRO [Concomitant]
     Route: 048
     Dates: start: 20050412
  8. STRATTERA [Concomitant]
     Route: 048
     Dates: start: 20050412
  9. ABILIFY [Concomitant]
     Dosage: 10 MG TO 20 MG
     Dates: start: 20061024

REACTIONS (6)
  - DIABETES MELLITUS [None]
  - DIABETIC GASTROPARESIS [None]
  - DIABETIC NEUROPATHY [None]
  - POLYNEUROPATHY [None]
  - TYPE 1 DIABETES MELLITUS [None]
  - TYPE 2 DIABETES MELLITUS [None]
